FAERS Safety Report 19951293 (Version 1)
Quarter: 2021Q4

REPORT INFORMATION
  Report Type: Spontaneous
  Country: US (occurrence: US)
  Receive Date: 20211013
  Receipt Date: 20211013
  Transmission Date: 20220303
  Serious: Yes (Hospitalization, Other)
  Sender: FDA-Public Use
  Company Number: US-MLMSERVICE-20210729-3024238-1

PATIENT
  Age: 1 Month
  Sex: Female

DRUGS (3)
  1. HEMANGEOL [Suspect]
     Active Substance: PROPRANOLOL HYDROCHLORIDE
     Indication: Infantile haemangioma
     Dosage: 2.3 MG/KG, UNK
     Route: 048
  2. HEMANGEOL [Suspect]
     Active Substance: PROPRANOLOL HYDROCHLORIDE
     Dosage: TITRATED UPWARDS FROM 1 TO 2.3 MG/KG/DAY OVER 4 WEEKS
     Route: 048
  3. HEMANGEOL [Suspect]
     Active Substance: PROPRANOLOL HYDROCHLORIDE
     Dosage: 1 MG/KG, UNK
     Route: 048

REACTIONS (3)
  - Feeding intolerance [Recovered/Resolved]
  - Vomiting [Recovered/Resolved]
  - Hypertriglyceridaemia [Recovered/Resolved]
